FAERS Safety Report 9425296 (Version 1)
Quarter: 2013Q3

REPORT INFORMATION
  Report Type: Spontaneous
  Country: JP (occurrence: JP)
  Receive Date: 20130729
  Receipt Date: 20130729
  Transmission Date: 20140515
  Serious: Yes (Life-Threatening, Hospitalization)
  Sender: FDA-Public Use
  Company Number: JP-PFIZER INC-2013215658

PATIENT
  Age: 40 Year
  Sex: Female

DRUGS (1)
  1. TEMSIROLIMUS [Suspect]
     Indication: RENAL CELL CARCINOMA
     Dosage: 15 MG, 1X/DAY
     Dates: start: 201206

REACTIONS (2)
  - Gastric antral vascular ectasia [Recovering/Resolving]
  - Mucosal haemorrhage [Recovering/Resolving]
